FAERS Safety Report 8317296-6 (Version None)
Quarter: 2012Q1

REPORT INFORMATION
  Report Type: 
  Country: None (occurrence: None)
  Receive Date: 20120315
  Receipt Date: 20111003
  Transmission Date: 20120608
  Serious: Yes (Other)
  Sender: FDA-Public Use
  Company Number: PHHY2011US03333

PATIENT
  Age: 68 Year
  Sex: Male

DRUGS (9)
  1. GILENYA [Suspect]
     Indication: RELAPSING-REMITTING MULTIPLE SCLEROSIS
     Dosage: 0.5 MG, QD, ORAL
     Route: 048
     Dates: start: 20101201
  2. VITAMIN D [Concomitant]
  3. REBIF [Concomitant]
  4. DDAVP (DESMORPRESSIN) [Concomitant]
  5. NAPRELAN [Concomitant]
  6. FLUTICASONE PROPIONATE [Concomitant]
  7. NEURONTIN [Concomitant]
  8. AVODART [Concomitant]
  9. KLONOPIN [Concomitant]

REACTIONS (2)
  - BLOOD PRESSURE INCREASED [None]
  - BRADYCARDIA [None]
